FAERS Safety Report 4516858-1 (Version None)
Quarter: 2004Q4

REPORT INFORMATION
  Report Type: 
  Country: None (occurrence: None)
  Receive Date: 20041029
  Receipt Date: 20040914
  Transmission Date: 20050328
  Serious: No
  Sender: FDA-Public Use
  Company Number: 2004-120309-NL

PATIENT
  Age: 28 Year
  Sex: Female
  Weight: 49.9 kg

DRUGS (1)
  1. NUVARING [Suspect]
     Indication: ANOVULATORY CYCLE
     Dosage: DF DAILY VAGINAL
     Route: 067
     Dates: start: 20040802

REACTIONS (1)
  - METRORRHAGIA [None]
